FAERS Safety Report 5599190-7 (Version None)
Quarter: 2008Q1

REPORT INFORMATION
  Report Type: 
  Country: None (occurrence: None)
  Receive Date: 20080122
  Receipt Date: 20080115
  Transmission Date: 20080703
  Serious: Yes (Hospitalization, Other)
  Sender: FDA-Public Use
  Company Number: AU-MERCK-0801AUS00106

PATIENT
  Age: 67 Year
  Sex: Female

DRUGS (9)
  1. FOSAMAX [Suspect]
     Indication: OSTEOPOROSIS
     Route: 048
     Dates: end: 20070801
  2. FOSAMAX [Suspect]
     Route: 051
  3. WARFARIN [Suspect]
     Route: 048
  4. METHOTREXATE [Concomitant]
     Route: 065
  5. PREDNISOLONE [Concomitant]
     Route: 065
  6. CALCIUM CARBONATE [Concomitant]
     Route: 065
  7. OMEPRAZOLE MAGNESIUM [Concomitant]
     Route: 065
  8. METOPROLOL TARTRATE [Concomitant]
     Route: 065
  9. OXYCODONE HYDROCHLORIDE [Concomitant]
     Route: 065

REACTIONS (2)
  - GASTRIC ANTRAL VASCULAR ECTASIA [None]
  - HIP FRACTURE [None]
